FAERS Safety Report 5866096-5 (Version None)
Quarter: 2008Q3

REPORT INFORMATION
  Report Type: 
  Country: None (occurrence: None)
  Receive Date: 20080829
  Receipt Date: 20080818
  Transmission Date: 20090109
  Serious: Yes (Other)
  Sender: FDA-Public Use
  Company Number: CH-PFIZER INC-2008065827

PATIENT
  Sex: Male

DRUGS (13)
  1. CHANTIX [Suspect]
     Indication: SMOKING CESSATION THERAPY
     Route: 048
  2. ACIDUM FOLICUM STREULI [Concomitant]
     Dosage: DAILY DOSE:5MG
  3. ASPIRIN [Concomitant]
     Dosage: DAILY DOSE:100MG
  4. BISOPROLOL FUMARATE [Concomitant]
  5. PLAVIX [Concomitant]
     Dosage: DAILY DOSE:75MG
  6. PRAVASTATIN SODIUM [Concomitant]
     Dosage: DAILY DOSE:40MG
  7. RAMIPRIL [Concomitant]
  8. METFORMIN HCL [Concomitant]
  9. INSULIN DETEMIR [Concomitant]
  10. GENERAL NUTRIENTS/MINERALS/VITAMINS [Concomitant]
  11. NOVORAPID [Concomitant]
     Dates: start: 20080313, end: 20080711
  12. COTENOLOL-MEPHA-NEO MITE [Concomitant]
  13. LISINOPRIL [Concomitant]
     Dosage: DAILY DOSE:5MG

REACTIONS (2)
  - FAECES DISCOLOURED [None]
  - HAEMATOMA [None]
